FAERS Safety Report 7632846-0 (Version None)
Quarter: 2011Q3

REPORT INFORMATION
  Report Type: 
  Country: None (occurrence: None)
  Receive Date: 20110725
  Receipt Date: 20110710
  Transmission Date: 20111222
  Serious: Yes (Hospitalization, Other)
  Sender: FDA-Public Use
  Company Number: PHHY2011IL61548

PATIENT
  Age: 49 Year
  Sex: Female

DRUGS (2)
  1. PREDNISONE+CYCLOPHOSPHAMID [Concomitant]
     Indication: RETINOPATHY
     Dosage: UNK
     Route: 048
     Dates: start: 20110401, end: 20110501
  2. RASILEZ [Suspect]
     Indication: RETINOPATHY
     Dosage: 300 MG, UNK
     Route: 048
     Dates: end: 20110701

REACTIONS (7)
  - PROTEINURIA [None]
  - HEPATIC ENZYME INCREASED [None]
  - LEUKOPENIA [None]
  - LYMPHADENOPATHY [None]
  - PULMONARY EMBOLISM [None]
  - PYREXIA [None]
  - ANAEMIA [None]
